FAERS Safety Report 5752241-9 (Version None)
Quarter: 2008Q2

REPORT INFORMATION
  Report Type: 
  Country: None (occurrence: None)
  Receive Date: 20080529
  Receipt Date: 20080520
  Transmission Date: 20081010
  Serious: Yes (Other)
  Sender: FDA-Public Use
  Company Number: CA-JNJFOC-20080504231

PATIENT
  Age: 58 Year
  Sex: Female
  Weight: 92.99 kg

DRUGS (2)
  1. RISPERDAL [Suspect]
     Route: 048
  2. RISPERDAL [Suspect]
     Indication: DRUG USE FOR UNKNOWN INDICATION
     Route: 048

REACTIONS (10)
  - ABDOMINAL PAIN [None]
  - ASTHENIA [None]
  - CARDIAC FLUTTER [None]
  - ENURESIS [None]
  - FLUID RETENTION [None]
  - HEADACHE [None]
  - MYALGIA [None]
  - RASH PRURITIC [None]
  - VISUAL DISTURBANCE [None]
  - WEIGHT INCREASED [None]
